FAERS Safety Report 25901365 (Version 1)
Quarter: 2025Q4

REPORT INFORMATION
  Report Type: Spontaneous
  Country: US (occurrence: US)
  Receive Date: 20251009
  Receipt Date: 20251009
  Transmission Date: 20260118
  Serious: Yes (Hospitalization)
  Sender: THERATECHNOLOGIES
  Company Number: US-THERATECHNOLOGIES INC.-2025-THE-IBA-000305

PATIENT

DRUGS (2)
  1. TROGARZO [Suspect]
     Active Substance: IBALIZUMAB-UIYK
     Indication: HIV infection
     Dosage: 800 MG, EVERY 14 DAYS
     Route: 042
     Dates: start: 202211
  2. SODIUM CHLORIDE [Concomitant]
     Active Substance: SODIUM CHLORIDE
     Indication: Product used for unknown indication
     Dosage: 5 ML
     Route: 065

REACTIONS (1)
  - Hospitalisation [Unknown]
